FAERS Safety Report 8206927-7 (Version None)
Quarter: 2012Q1

REPORT INFORMATION
  Report Type: 
  Country: None (occurrence: None)
  Receive Date: 20120314
  Receipt Date: 20120302
  Transmission Date: 20120608
  Serious: Yes (Other)
  Sender: FDA-Public Use
  Company Number: US-SANOFI-AVENTIS-2012SA014644

PATIENT
  Age: 70 Year
  Sex: Male

DRUGS (4)
  1. LANTUS [Suspect]
     Dosage: DOSE:38 UNIT(S)
     Route: 058
  2. SOLOSTAR [Suspect]
  3. LANTUS [Suspect]
     Dosage: DOSE:42 UNIT(S)
     Route: 058
  4. LANTUS [Suspect]
     Dosage: DOSE:64 UNIT(S)
     Route: 058

REACTIONS (1)
  - CARDIAC PACEMAKER INSERTION [None]
